FAERS Safety Report 14242601 (Version 3)
Quarter: 2017Q4

REPORT INFORMATION
  Report Type: Spontaneous
  Country: US (occurrence: US)
  Receive Date: 20171201
  Receipt Date: 20171222
  Transmission Date: 20180321
  Serious: No
  Sender: FDA-Public Use
  Company Number: US-PFIZER INC-2017515104

PATIENT
  Age: 21 Month
  Sex: Male

DRUGS (2)
  1. EUCRISA [Suspect]
     Active Substance: CRISABOROLE
     Indication: ECZEMA
     Dosage: 1 DF (THIN FILM TO AFFECTED AREA), TWICE DAILY
     Route: 061
     Dates: start: 20171019, end: 20171019
  2. EUCRISA [Suspect]
     Active Substance: CRISABOROLE
     Indication: DERMATITIS ATOPIC

REACTIONS (4)
  - Application site pain [Unknown]
  - Drug administered to patient of inappropriate age [Unknown]
  - Crying [Unknown]
  - Application site erythema [Unknown]

NARRATIVE: CASE EVENT DATE: 20171019
